FAERS Safety Report 14467930 (Version 6)
Quarter: 2018Q2

REPORT INFORMATION
  Report Type: Spontaneous
  Country: US (occurrence: US)
  Receive Date: 20180131
  Receipt Date: 20180611
  Transmission Date: 20180711
  Serious: No
  Sender: FDA-Public Use
  Company Number: US-PFIZER INC-2018039662

PATIENT
  Age: 59 Year
  Sex: Female

DRUGS (2)
  1. XANAX XR [Suspect]
     Active Substance: ALPRAZOLAM
     Indication: PANIC ATTACK
     Dosage: 1 MG, UNK
  2. XANAX XR [Suspect]
     Active Substance: ALPRAZOLAM
     Dosage: ^3X A DAY 1MG 2MG^
     Dates: start: 201801

REACTIONS (2)
  - Bronchitis [Recovered/Resolved]
  - Emotional distress [Unknown]

NARRATIVE: CASE EVENT DATE: 201801
